FAERS Safety Report 10163284 (Version 1)
Quarter: 2014Q2

REPORT INFORMATION
  Report Type: Spontaneous
  Country: TR (occurrence: TR)
  Receive Date: 20140509
  Receipt Date: 20140509
  Transmission Date: 20141212
  Serious: Yes (Other)
  Sender: FDA-Public Use
  Company Number: TR-AMGEN-TURSP2014033185

PATIENT
  Sex: 0

DRUGS (1)
  1. NEUPOGEN [Suspect]
     Indication: NEUTROPENIA
     Dosage: 5 MUG/KG/DAY
     Route: 058

REACTIONS (4)
  - Febrile neutropenia [Unknown]
  - Bone pain [Unknown]
  - Gingivitis [Unknown]
  - Gastroenteritis [Unknown]
